FAERS Safety Report 8848217 (Version 1)
Quarter: 2012Q4

REPORT INFORMATION
  Report Type: 
  Country: US (occurrence: US)
  Receive Date: 20121018
  Receipt Date: 20121018
  Transmission Date: 20130627
  Serious: No
  Sender: FDA-Public Use
  Company Number: US-PFIZER INC-2012258964

PATIENT
  Age: 48 Year
  Sex: Female
  Weight: 71.66 kg

DRUGS (3)
  1. RELPAX [Suspect]
     Indication: MIGRAINE
     Dosage: 20 mg, as needed
  2. RELPAX [Suspect]
     Dosage: 40 mg, as needed
     Dates: end: 20121014
  3. ACETAMINOPHEN HYDROCODONE [Suspect]
     Indication: MIGRAINE
     Dosage: 5/500 mg as needed
     Route: 048
     Dates: start: 2007

REACTIONS (3)
  - Dizziness [Recovered/Resolved]
  - Nausea [Recovered/Resolved]
  - Headache [Recovered/Resolved]
